FAERS Safety Report 8997723 (Version 1)
Quarter: 2013Q1

REPORT INFORMATION
  Report Type: Spontaneous
  Country: US (occurrence: US)
  Receive Date: 20130104
  Receipt Date: 20130104
  Transmission Date: 20140127
  Serious: Yes (Hospitalization)
  Sender: FDA-Public Use
  Company Number: US-MERCK-1301USA000931

PATIENT
  Age: 49 Year
  Sex: Female

DRUGS (9)
  1. SINGULAIR [Suspect]
     Route: 048
  2. PREDNISONE [Suspect]
     Route: 048
  3. FUROSEMIDE [Suspect]
     Route: 048
  4. ROBAXIN [Suspect]
     Dosage: 500 MG, QD
     Route: 048
  5. SOLU-MEDROL [Suspect]
     Route: 042
  6. THEO-DUR [Suspect]
     Route: 048
  7. HUMIBID [Suspect]
     Route: 048
  8. MONOPRIL [Concomitant]
  9. ROCEPHIN [Suspect]
     Dosage: 1000 MG, 6 PER 1 DAY
     Route: 042

REACTIONS (3)
  - Rash papular [Unknown]
  - Pruritus [Unknown]
  - Joint swelling [Unknown]
